FAERS Safety Report 14569297 (Version 1)
Quarter: 2018Q1

REPORT INFORMATION
  Report Type: Spontaneous
  Country: CN (occurrence: CN)
  Receive Date: 20180223
  Receipt Date: 20180223
  Transmission Date: 20180509
  Serious: Yes (Other)
  Sender: FDA-Public Use
  Company Number: CN-BRISTOL-MYERS SQUIBB COMPANY-BMS-2018-016039

PATIENT
  Sex: Female

DRUGS (2)
  1. METFORMIN HYDROCHLORIDE. [Suspect]
     Active Substance: METFORMIN HYDROCHLORIDE
     Indication: POLYCYSTIC OVARIES
     Route: 065
  2. ELEVIT                             /01730301/ [Suspect]
     Active Substance: FOLIC ACID\IRON\MINERALS\VITAMINS
     Indication: POLYCYSTIC OVARIES
     Route: 048

REACTIONS (5)
  - Pyrexia [Unknown]
  - Cough [Unknown]
  - Faeces discoloured [Unknown]
  - Peritonsillar abscess [Recovering/Resolving]
  - Product use in unapproved indication [Unknown]
